FAERS Safety Report 5106070-X (Version None)
Quarter: 2006Q3

REPORT INFORMATION
  Report Type: 
  Country: None (occurrence: None)
  Receive Date: 20060912
  Receipt Date: 20060830
  Transmission Date: 20061208
  Serious: Yes (Other)
  Sender: FDA-Public Use
  Company Number: 2006106379

PATIENT
  Sex: Male

DRUGS (5)
  1. DOSTINEX [Suspect]
     Indication: PROLACTINOMA
  2. CABERGOLINE [Suspect]
     Indication: BLOOD PROLACTIN INCREASED
  3. LEVOTHROID [Concomitant]
  4. CORTEF [Concomitant]
  5. VICODIN [Concomitant]

REACTIONS (1)
  - BLOOD PROLACTIN INCREASED [None]
